FAERS Safety Report 8977945 (Version 6)
Quarter: 2013Q3

REPORT INFORMATION
  Report Type: Spontaneous
  Country: US (occurrence: US)
  Receive Date: 20121219
  Receipt Date: 20130827
  Transmission Date: 20140515
  Serious: Yes (Hospitalization, Other)
  Sender: FDA-Public Use
  Company Number: US-009507513-1111USA00653

PATIENT
  Sex: Female

DRUGS (9)
  1. FOSAMAX [Suspect]
     Indication: OSTEOPOROSIS
     Dosage: 10 MG, QAM
     Route: 048
     Dates: start: 199710, end: 200201
  2. FOSAMAX [Suspect]
     Dosage: 70 MG, QW
     Route: 048
     Dates: start: 20010604
  3. FOSAMAX [Suspect]
     Indication: OSTEOPOROSIS
     Dosage: 70 MG, UNK
     Route: 048
     Dates: start: 200803, end: 20090825
  4. ALENDRONATE SODIUM [Suspect]
     Dosage: 70 MG, QW
     Route: 048
  5. OMEGA-3 MARINE TRIGLYCERIDES [Concomitant]
     Dosage: 1200 MG, UNK
     Dates: start: 1995
  6. VITAMIN B (UNSPECIFIED) [Concomitant]
     Dosage: 1200 MG, UNK
     Dates: start: 1995
  7. ASCORBIC ACID [Concomitant]
     Dosage: 1000 MG, UNK
     Dates: start: 1995
  8. VITAMIN D (UNSPECIFIED) [Concomitant]
     Dosage: 2000 MG, UNK
     Dates: start: 1995
  9. VITAMIN E [Concomitant]
     Dosage: 1000 MG, UNK
     Dates: start: 1995

REACTIONS (53)
  - Femur fracture [Unknown]
  - Open reduction of fracture [Unknown]
  - Fall [Unknown]
  - Device failure [Unknown]
  - Hip arthroplasty [Unknown]
  - Hip arthroplasty [Unknown]
  - Surgery [Unknown]
  - Hypotension [Recovering/Resolving]
  - Neurogenic bladder [Unknown]
  - Atrial fibrillation [Recovering/Resolving]
  - Anaemia postoperative [Recovering/Resolving]
  - Clostridium bacteraemia [Unknown]
  - Liver function test abnormal [Unknown]
  - Pneumonia [Recovering/Resolving]
  - Spinal compression fracture [Unknown]
  - Osteoarthritis [Unknown]
  - Limb operation [Unknown]
  - Craniocerebral injury [Unknown]
  - Hypothyroidism [Unknown]
  - Upper limb fracture [Unknown]
  - Oedema [Unknown]
  - Osteoporosis [Unknown]
  - Arthropathy [Unknown]
  - Bipolar disorder [Unknown]
  - Wrist fracture [Unknown]
  - Fall [Unknown]
  - Hypertension [Not Recovered/Not Resolved]
  - Aortic arteriosclerosis [Unknown]
  - Spondylolisthesis [Unknown]
  - Compression fracture [Unknown]
  - Spinal column stenosis [Unknown]
  - Compression fracture [Unknown]
  - Spinal osteoarthritis [Unknown]
  - Urinary incontinence [Unknown]
  - Abdominal operation [Unknown]
  - Hyperthyroidism [Unknown]
  - Sleep disorder [Unknown]
  - Cardiac murmur [Unknown]
  - Atrial fibrillation [Recovered/Resolved]
  - Bacterial test [Unknown]
  - Proteus infection [Unknown]
  - Psychotic disorder [Unknown]
  - Ascites [Unknown]
  - Pleural effusion [Unknown]
  - Atelectasis [Unknown]
  - Exostosis [Unknown]
  - Kyphosis [Unknown]
  - Oral candidiasis [Unknown]
  - Anaemia postoperative [Unknown]
  - Generalised oedema [Unknown]
  - Malaise [Unknown]
  - Asthenia [Unknown]
  - Drug ineffective [Unknown]
